FAERS Safety Report 23679914 (Version 2)
Quarter: 2024Q2

REPORT INFORMATION
  Report Type: Report from Study
  Country: EG (occurrence: EG)
  Receive Date: 20240327
  Receipt Date: 20240410
  Transmission Date: 20240715
  Serious: Yes (Other)
  Sender: FDA-Public Use
  Company Number: EG-002147023-NVSC2023EG050860

PATIENT
  Age: 52 Year
  Sex: Female
  Weight: 80 kg

DRUGS (4)
  1. HYRIMOZ [Suspect]
     Active Substance: ADALIMUMAB-ADAZ
     Indication: Psoriatic arthropathy
     Dosage: 80 MG (LOADING DOSE) AT 0 WEEK THEN 40 MG EVERY OTHER WEEK
     Route: 058
     Dates: start: 202202, end: 20230306
  2. HYRIMOZ [Suspect]
     Active Substance: ADALIMUMAB-ADAZ
     Indication: Psoriasis
     Dosage: 40 MG (AFTER 1 WEEK)
     Route: 058
     Dates: end: 202208
  3. HYRIMOZ [Suspect]
     Active Substance: ADALIMUMAB-ADAZ
     Dosage: 40 MG (EVERY OTHER WEEK FOR 6 MONTHS)
     Route: 058
     Dates: start: 202211
  4. SINOPRIL CO [Concomitant]
     Indication: Hypertension
     Dosage: 1 DOSAGE FORM, QD (5 YEARS AGO)
     Route: 065

REACTIONS (7)
  - Rebound psoriasis [Recovered/Resolved]
  - Fatigue [Not Recovered/Not Resolved]
  - Neuropathy peripheral [Recovering/Resolving]
  - Hypoaesthesia [Not Recovered/Not Resolved]
  - Headache [Not Recovered/Not Resolved]
  - Hepatic enzyme increased [Not Recovered/Not Resolved]
  - Condition aggravated [Unknown]

NARRATIVE: CASE EVENT DATE: 20220201
